FAERS Safety Report 23423473 (Version 1)
Quarter: 2024Q1

REPORT INFORMATION
  Report Type: Spontaneous
  Country: JP (occurrence: JP)
  Receive Date: 20240119
  Receipt Date: 20240119
  Transmission Date: 20240410
  Serious: Yes (Death)
  Sender: FDA-Public Use
  Company Number: JP-BAUSCH-BL-2024-000858

PATIENT
  Age: 68 Year
  Sex: Female

DRUGS (3)
  1. TARGRETIN [Suspect]
     Active Substance: BEXAROTENE
     Indication: Cutaneous T-cell lymphoma
     Route: 048
     Dates: start: 20220615
  2. TARGRETIN [Suspect]
     Active Substance: BEXAROTENE
     Route: 048
  3. TARGRETIN [Suspect]
     Active Substance: BEXAROTENE
     Route: 048

REACTIONS (4)
  - Interleukin level increased [Fatal]
  - Disease progression [Fatal]
  - Hepatic function abnormal [Unknown]
  - Hypothyroidism [Not Recovered/Not Resolved]
